FAERS Safety Report 9782430 (Version 1)
Quarter: 2013Q4

REPORT INFORMATION
  Report Type: Spontaneous
  Country: FR (occurrence: FR)
  Receive Date: 20131226
  Receipt Date: 20131226
  Transmission Date: 20140711
  Serious: Yes (Hospitalization)
  Sender: FDA-Public Use
  Company Number: FR-JNJFOC-20131213072

PATIENT
  Age: 51 Year
  Sex: Male

DRUGS (3)
  1. RISPERDAL [Suspect]
     Indication: PRODUCT USED FOR UNKNOWN INDICATION
     Route: 048
     Dates: start: 201310
  2. ALPRAZOLAM [Concomitant]
     Route: 065
  3. ZOPICLONE [Concomitant]
     Route: 065

REACTIONS (1)
  - Liver disorder [Unknown]
